FAERS Safety Report 5728498-7 (Version None)
Quarter: 2008Q2

REPORT INFORMATION
  Report Type: 
  Country: None (occurrence: None)
  Receive Date: 20080502
  Receipt Date: 20080502
  Transmission Date: 20081010
  Serious: Yes (Hospitalization)
  Sender: FDA-Public Use
  Company Number: None

PATIENT
  Age: 83 Year
  Sex: Female
  Weight: 63.5036 kg

DRUGS (1)
  1. CYMBALTA [Suspect]
     Indication: DEPRESSION
     Dosage: 30MG  2 PER DAY PO
     Route: 048
     Dates: start: 20071215, end: 20080315

REACTIONS (4)
  - ABNORMAL DREAMS [None]
  - ANXIETY [None]
  - HALLUCINATION [None]
  - SLEEP DISORDER [None]
